FAERS Safety Report 8996870 (Version 1)
Quarter: 2012Q4

REPORT INFORMATION
  Report Type: Spontaneous
  Country: BE (occurrence: None)
  Receive Date: 20121220
  Receipt Date: 20121220
  Transmission Date: 20130627
  Serious: Yes (Other)
  Sender: FDA-Public Use
  Company Number: 2012-17835

PATIENT
  Age: 63 Year
  Sex: Female

DRUGS (3)
  1. OMEPRAZOLE (UNKNOWN) (OMEPRAZOLE) UNK, UNKUNK [Suspect]
     Indication: GASTROOESOPHAGEAL REFLUX DISEASE
     Dates: start: 1995
  2. PANTOPRAZOLE SODIUM (UNKNOWN)(PANTOPRAZOLE SODIUM) UNK, UNKUNK [Suspect]
  3. LANSOPRAZOLE (UNKNOWN) (LANSOPRAZOLE) UNK, UNKUNK [Suspect]

REACTIONS (3)
  - Prurigo [None]
  - Hypersensitivity [None]
  - Hepatocellular injury [None]
